FAERS Safety Report 5952674-1 (Version None)
Quarter: 2008Q4

REPORT INFORMATION
  Report Type: 
  Country: None (occurrence: None)
  Receive Date: 20081113
  Receipt Date: 20081101
  Transmission Date: 20090506
  Serious: Yes (Other)
  Sender: FDA-Public Use
  Company Number: AU-SANOFI-SYNTHELABO-A01200813791

PATIENT
  Age: 17 Year
  Sex: Female

DRUGS (2)
  1. TEMAZEPAM [Concomitant]
     Dosage: UNK
     Route: 065
  2. ZOLPIDEM [Suspect]
     Indication: INSOMNIA
     Dosage: UNK
     Route: 048

REACTIONS (6)
  - AMNESIA [None]
  - CONFUSIONAL STATE [None]
  - PAIN IN EXTREMITY [None]
  - SELF INJURIOUS BEHAVIOUR [None]
  - SLEEP TALKING [None]
  - SOMNAMBULISM [None]
